FAERS Safety Report 5996547-7 (Version None)
Quarter: 2008Q4

REPORT INFORMATION
  Report Type: 
  Country: None (occurrence: None)
  Receive Date: 20081212
  Receipt Date: 20081017
  Transmission Date: 20090506
  Serious: No
  Sender: FDA-Public Use
  Company Number: US-ABBOTT-08P-163-0482655-00

PATIENT
  Sex: Male
  Weight: 96.248 kg

DRUGS (1)
  1. HUMIRA [Suspect]
     Indication: PSORIATIC ARTHROPATHY
     Route: 058
     Dates: start: 20081013

REACTIONS (2)
  - ERYTHRODERMIC PSORIASIS [None]
  - PSORIASIS [None]
